FAERS Safety Report 8321211-9 (Version None)
Quarter: 2012Q2

REPORT INFORMATION
  Report Type: 
  Country: None (occurrence: None)
  Receive Date: 20120430
  Receipt Date: 20120426
  Transmission Date: 20120825
  Serious: Yes (Hospitalization)
  Sender: FDA-Public Use
  Company Number: FR-PFIZER INC-2012094551

PATIENT
  Age: 51 Year
  Sex: Female

DRUGS (6)
  1. INDORAMIN [Suspect]
     Dosage: 2 DF, 1X/DAY
     Route: 048
     Dates: start: 20090101
  2. KETOPROFEN [Concomitant]
     Dosage: UNK
     Dates: start: 20110419
  3. CLONAZEPAM [Concomitant]
     Dosage: 3 GTT, 1X/DAY
     Dates: start: 20101025
  4. EFFEXOR XR [Suspect]
     Dosage: 2 DF, 1X/DAY
     Route: 048
     Dates: end: 20120309
  5. FROVATRIPTAN [Suspect]
     Dosage: UNK
     Route: 048
     Dates: end: 20090101
  6. LANSOPRAZOLE [Suspect]
     Dosage: 15 MG, UNK
     Route: 048
     Dates: start: 20090101

REACTIONS (2)
  - CIRCULATING ANTICOAGULANT [None]
  - INTERSTITIAL LUNG DISEASE [None]
